FAERS Safety Report 7603180-X (Version None)
Quarter: 2011Q3

REPORT INFORMATION
  Report Type: 
  Country: None (occurrence: None)
  Receive Date: 20110712
  Receipt Date: 20110705
  Transmission Date: 20111222
  Serious: Yes (Hospitalization, Other)
  Sender: FDA-Public Use
  Company Number: US-PFIZER INC-2008025430

PATIENT
  Sex: Female

DRUGS (23)
  1. PHENYTOIN [Suspect]
     Indication: CONVULSION
  2. CEFEPIME [Concomitant]
     Dosage: 1 G, EVERY 12 HOURS
     Dates: start: 20070122
  3. DILANTIN-125 [Suspect]
     Dosage: 200 MG, 2X/DAY
     Route: 048
     Dates: start: 20061222, end: 20070302
  4. NITROGLYCERIN [Concomitant]
     Route: 061
  5. MULTI-VITAMINS [Concomitant]
  6. DILANTIN-125 [Suspect]
     Indication: CONVULSION
     Dosage: 300 MG, 2X/DAY
     Dates: start: 20061223, end: 20070118
  7. CLONIDINE [Concomitant]
  8. LABETALOL HCL [Concomitant]
  9. ZOFRAN [Concomitant]
  10. FERROUS SULFATE [Concomitant]
     Dosage: 325 MG, 2X/DAY
     Route: 048
     Dates: start: 20070123
  11. DILANTIN [Suspect]
     Dosage: 200 MG, 2X/DAY
     Route: 042
     Dates: start: 20061222, end: 20070204
  12. DILANTIN [Suspect]
     Dosage: 100 MG, 2X/DAY
     Route: 048
     Dates: start: 20070110, end: 20070131
  13. LASIX [Concomitant]
  14. LOPRESSOR [Concomitant]
  15. IPRATROPIUM BROMIDE AND ALBUTEROL SULFATE [Concomitant]
     Dosage: 2 PUFF INHALATION
     Dates: start: 20070119
  16. PREVACID [Concomitant]
  17. LISINOPRIL [Concomitant]
  18. TYLENOL-500 [Concomitant]
  19. BENADRYL [Concomitant]
  20. HYDRALAZINE [Concomitant]
  21. DILANTIN [Suspect]
     Indication: CONVULSION
     Dosage: 300 MG, 2X/DAY
     Dates: start: 20070118
  22. REGLAN [Concomitant]
  23. MICONAZOLE NITRATE [Concomitant]
     Dosage: UNK
     Route: 061
     Dates: start: 20070119

REACTIONS (13)
  - STEVENS-JOHNSON SYNDROME [None]
  - DRY EYE [None]
  - DYSPHAGIA [None]
  - VISION BLURRED [None]
  - SCAR [None]
  - RASH [None]
  - RENAL FAILURE ACUTE [None]
  - DYSPNOEA [None]
  - OEDEMA PERIPHERAL [None]
  - PRODUCTIVE COUGH [None]
  - DRUG RASH WITH EOSINOPHILIA AND SYSTEMIC SYMPTOMS [None]
  - ENCEPHALOPATHY [None]
  - HYPERSENSITIVITY [None]
